FAERS Safety Report 6400536-8 (Version None)
Quarter: 2009Q4

REPORT INFORMATION
  Report Type: 
  Country: None (occurrence: None)
  Receive Date: 20091013
  Receipt Date: 20091013
  Transmission Date: 20100525
  Serious: Yes (Other)
  Sender: FDA-Public Use
  Company Number: None

PATIENT
  Age: 45 Year
  Sex: Female
  Weight: 68.0396 kg

DRUGS (1)
  1. ORTHO EVRA [Suspect]
     Indication: CONTRACEPTION
     Dosage: ONE PATCH ONE WEEK
     Dates: start: 20091001, end: 20091007

REACTIONS (8)
  - BONE PAIN [None]
  - HEADACHE [None]
  - MYALGIA [None]
  - MYOCARDIAL INFARCTION [None]
  - PALPITATIONS [None]
  - RHINORRHOEA [None]
  - SNEEZING [None]
  - SPINAL DISORDER [None]
